FAERS Safety Report 9689562 (Version 3)
Quarter: 2014Q1

REPORT INFORMATION
  Report Type: Spontaneous
  Country: US (occurrence: US)
  Receive Date: 20131115
  Receipt Date: 20140131
  Transmission Date: 20141002
  Serious: No
  Sender: FDA-Public Use
  Company Number: US-009507513-1311USA005956

PATIENT
  Age: 63 Year
  Sex: Male

DRUGS (6)
  1. REBETOL [Suspect]
     Indication: HEPATITIS C
     Dosage: 3 DF, BID
     Route: 048
     Dates: start: 20131111
  2. PEGINTRON [Suspect]
     Indication: HEPATITIS C
     Dosage: .5 ML, QW
     Route: 058
     Dates: start: 20131111
  3. LISINOPRIL [Concomitant]
     Dosage: 1 DF, QD
  4. LEVOTHYROXINE SODIUM [Concomitant]
     Dosage: 1 DF, QD
  5. GABAPENTIN [Concomitant]
     Dosage: 600 MG, TID
  6. OXYCODONE [Concomitant]
     Dosage: 1/2 TABLET Q6H , PRN

REACTIONS (5)
  - Dyspepsia [Unknown]
  - Insomnia [Unknown]
  - Pyrexia [Unknown]
  - Malaise [Unknown]
  - Fatigue [Unknown]
